FAERS Safety Report 5563900-5 (Version None)
Quarter: 2007Q4

REPORT INFORMATION
  Report Type: 
  Country: None (occurrence: None)
  Receive Date: 20071217
  Receipt Date: 20071003
  Transmission Date: 20080405
  Serious: No
  Sender: FDA-Public Use
  Company Number: US-ASTRAZENECA-2007UW23076

PATIENT
  Age: 60 Year
  Sex: Male

DRUGS (4)
  1. CRESTOR [Suspect]
     Indication: CORONARY ARTERY DISEASE
     Route: 048
  2. TOPROL-XL [Concomitant]
     Indication: CORONARY ARTERY DISEASE
     Route: 048
  3. NITROGLYCERIN [Concomitant]
     Indication: CORONARY ARTERY DISEASE
     Route: 060
  4. ACETYLSALICYLIC ACID SRT [Concomitant]
     Indication: CORONARY ARTERY DISEASE
     Route: 048

REACTIONS (1)
  - TOOTHACHE [None]
